FAERS Safety Report 18779688 (Version 1)
Quarter: 2021Q1

REPORT INFORMATION
  Report Type: Report from Study
  Country: CA (occurrence: CA)
  Receive Date: 20210125
  Receipt Date: 20210125
  Transmission Date: 20210419
  Serious: Yes (Hospitalization)
  Sender: FDA-Public Use
  Company Number: CA-BIOGEN-2021BI00969655

PATIENT
  Sex: Female

DRUGS (1)
  1. FAMPYRA [Suspect]
     Active Substance: DALFAMPRIDINE
     Indication: MULTIPLE SCLEROSIS
     Route: 048
     Dates: start: 20130104

REACTIONS (6)
  - Spinal fracture [Unknown]
  - Fall [Recovered/Resolved]
  - Osteoporosis [Unknown]
  - Multiple fractures [Unknown]
  - Vertigo [Recovered/Resolved]
  - Joint dislocation [Unknown]
